FAERS Safety Report 5810512-1 (Version None)
Quarter: 2008Q3

REPORT INFORMATION
  Report Type: 
  Country: None (occurrence: None)
  Receive Date: 20080715
  Receipt Date: 20080707
  Transmission Date: 20090109
  Serious: Yes (Hospitalization)
  Sender: FDA-Public Use
  Company Number: US-ELI_LILLY_AND_COMPANY-US200807001221

PATIENT
  Sex: Male
  Weight: 158.73 kg

DRUGS (9)
  1. BYETTA [Suspect]
     Indication: TYPE 2 DIABETES MELLITUS
     Dosage: 5 UG, 2/D
     Route: 058
     Dates: start: 20080301
  2. GLUCOPHAGE [Concomitant]
     Indication: TYPE 2 DIABETES MELLITUS
     Dosage: 1000 MG, 2/D
     Route: 048
  3. LANTUS [Concomitant]
     Indication: TYPE 2 DIABETES MELLITUS
     Dosage: 130 U, 2/D
     Route: 058
     Dates: start: 20050101
  4. HUMALOG [Concomitant]
     Indication: TYPE 2 DIABETES MELLITUS
     Dosage: UNK, AS NEEDED
     Route: 058
     Dates: start: 20030101
  5. SIMVASTATIN [Concomitant]
     Indication: BLOOD CHOLESTEROL
     Dosage: 40 MG, DAILY (1/D)
     Route: 048
  6. AVAPRO [Concomitant]
     Indication: PROPHYLAXIS
     Dosage: 300 MG, DAILY (1/D)
     Route: 048
     Dates: start: 20030101
  7. HYDROCHLOROTHIAZIDE [Concomitant]
     Indication: PROPHYLAXIS
     Dosage: 25 MG, DAILY (1/D)
     Route: 048
     Dates: start: 20030101
  8. ZYRTEC [Concomitant]
     Indication: HYPERSENSITIVITY
     Dosage: 10 MG, DAILY (1/D)
     Route: 048
     Dates: start: 20060101
  9. ASPIRIN [Concomitant]
     Indication: PROPHYLAXIS
     Dosage: 81 MG, DAILY (1/D)
     Route: 048

REACTIONS (3)
  - IMPAIRED HEALING [None]
  - LIMB INJURY [None]
  - OSTEOMYELITIS [None]
